FAERS Safety Report 11244218 (Version 1)
Quarter: 2015Q3

REPORT INFORMATION
  Report Type: Spontaneous
  Country: US (occurrence: None)
  Receive Date: 20150706
  Receipt Date: 20150706
  Transmission Date: 20151125
  Serious: No
  Sender: FDA-Public Use
  Company Number: None

PATIENT

DRUGS (4)
  1. ACYCLOVIR. [Suspect]
     Active Substance: ACYCLOVIR
  2. NS [Suspect]
     Active Substance: SODIUM CHLORIDE
  3. SODIUM [Suspect]
     Active Substance: SODIUM
  4. POTASSIUM PHOSPHATE [Suspect]
     Active Substance: POTASSIUM PHOSPHATE

REACTIONS (3)
  - Incorrect dose administered [None]
  - Device computer issue [None]
  - Circumstance or information capable of leading to device use error [None]
